FAERS Safety Report 8247959-2 (Version None)
Quarter: 2012Q1

REPORT INFORMATION
  Report Type: 
  Country: None (occurrence: None)
  Receive Date: 20120330
  Receipt Date: 20120322
  Transmission Date: 20120608
  Serious: Yes (Other)
  Sender: FDA-Public Use
  Company Number: US-BRISTOL-MYERS SQUIBB COMPANY-16423105

PATIENT
  Age: 41 Year
  Sex: Male

DRUGS (1)
  1. ABILIFY [Suspect]
     Indication: MAJOR DEPRESSION
     Dosage: APPROX 2 YEARS,2MG ONE TIME, 1MG ONE TIME,MID FEB2012,SAMPLE PACK,30-60 MINS AGO
     Route: 048
     Dates: start: 20090901

REACTIONS (1)
  - MIGRAINE [None]
